FAERS Safety Report 7750368-3 (Version None)
Quarter: 2011Q3

REPORT INFORMATION
  Report Type: 
  Country: None (occurrence: None)
  Receive Date: 20110912
  Receipt Date: 20110901
  Transmission Date: 20111222
  Serious: Yes (Hospitalization)
  Sender: FDA-Public Use
  Company Number: 20109350

PATIENT
  Age: 4 Year
  Sex: Male

DRUGS (12)
  1. ONON [Concomitant]
  2. TRICLORYI [Concomitant]
  3. ASVERIN [Concomitant]
  4. BACLOFEN [Suspect]
     Indication: MUSCLE SPASTICITY
     Dosage: MCG, DAILY, INTRATHECAL
     Route: 037
  5. DIAZEPAM [Concomitant]
  6. ARTANE [Concomitant]
  7. MYSTAN [Concomitant]
  8. MUCODYNE [Concomitant]
  9. PERIACTIN [Concomitant]
  10. DANTRIUM [Concomitant]
  11. PHENOBARBITAL TAB [Concomitant]
  12. MUCOSIL-10 [Concomitant]

REACTIONS (2)
  - IMPLANT SITE EFFUSION [None]
  - FLUID RETENTION [None]
